FAERS Safety Report 7434151-4 (Version None)
Quarter: 2011Q2

REPORT INFORMATION
  Report Type: 
  Country: None (occurrence: None)
  Receive Date: 20110425
  Receipt Date: 20110418
  Transmission Date: 20111010
  Serious: No
  Sender: FDA-Public Use
  Company Number: US-PFIZER INC-2011084609

PATIENT
  Age: 56 Year
  Sex: Male

DRUGS (5)
  1. DEPAKOTE ER [Suspect]
     Dosage: UNK
  2. GEODON [Suspect]
     Dosage: UNK
  3. LITHIUM [Suspect]
     Dosage: UNK
  4. ABILIFY [Suspect]
     Dosage: UNK
  5. SEROQUEL XR [Suspect]
     Dosage: UNK

REACTIONS (1)
  - ANXIETY [None]
